FAERS Safety Report 8006090-1 (Version None)
Quarter: 2011Q4

REPORT INFORMATION
  Report Type: 
  Country: None (occurrence: None)
  Receive Date: 20111226
  Receipt Date: 20111214
  Transmission Date: 20120403
  Serious: Yes (Death, Other)
  Sender: FDA-Public Use
  Company Number: US-PAR PHARMACEUTICAL, INC-2011SCPR003523

PATIENT
  Age: 51 Year
  Sex: Male

DRUGS (2)
  1. DOXEPIN [Suspect]
     Indication: PRODUCT USED FOR UNKNOWN INDICATION
     Dosage: 60 TABLETS, UNKNOWN
     Route: 048
  2. ETHANOL [Suspect]
     Indication: PRODUCT USED FOR UNKNOWN INDICATION
     Dosage: UNK, UNKNOWN
     Route: 065

REACTIONS (5)
  - CARDIAC ARREST [None]
  - OVERDOSE [None]
  - COMPLETED SUICIDE [None]
  - CONVULSION [None]
  - DEATH [None]
